FAERS Safety Report 5753762-5 (Version None)
Quarter: 2008Q2

REPORT INFORMATION
  Report Type: 
  Country: None (occurrence: None)
  Receive Date: 20080530
  Receipt Date: 20080522
  Transmission Date: 20081010
  Serious: Yes (Other)
  Sender: FDA-Public Use
  Company Number: US-ABBOTT-08P-163-0453177-00

PATIENT

DRUGS (1)
  1. ULTANE [Suspect]
     Indication: DRUG USE FOR UNKNOWN INDICATION
     Dates: start: 20080521

REACTIONS (2)
  - DEVICE MALFUNCTION [None]
  - UNWANTED AWARENESS DURING ANAESTHESIA [None]
